FAERS Safety Report 10420157 (Version 1)
Quarter: 2014Q3

REPORT INFORMATION
  Report Type: Spontaneous
  Country: US (occurrence: None)
  Receive Date: 20140701
  Receipt Date: 20140701
  Transmission Date: 20150326
  Serious: No
  Sender: FDA-Public Use
  Company Number: 1000067554

PATIENT
  Age: 71 Year
  Sex: Female

DRUGS (3)
  1. PROTONIX (PANTOPRAZOLE SODIUM SESQUIHYDRATE) (PANTOPRAZOLE SODIUM SESQUIHYDRATE) [Concomitant]
  2. LINZESS [Suspect]
     Active Substance: LINACLOTIDE
     Indication: CONSTIPATION
     Dosage: 145 MCG (145 MCG, 1 IN 1 D), ORAL
     Route: 048
     Dates: start: 201405
  3. PROBIOTIC NOS (PROBIOTIC NOS) (PROBIOTIC NOS) [Concomitant]

REACTIONS (1)
  - Drug ineffective [None]

NARRATIVE: CASE EVENT DATE: 201405
